FAERS Safety Report 17770028 (Version 1)
Quarter: 2020Q2

REPORT INFORMATION
  Report Type: Spontaneous
  Country: US (occurrence: US)
  Receive Date: 20200512
  Receipt Date: 20200512
  Transmission Date: 20200714
  Serious: No
  Sender: FDA-Public Use
  Company Number: US-AMGEN-USASP2020075051

PATIENT
  Age: 82 Year
  Sex: Female

DRUGS (2)
  1. KANJINTI [Suspect]
     Active Substance: TRASTUZUMAB-ANNS
     Indication: BREAST CANCER
     Dosage: 440 MILLIGRAM
     Route: 065
     Dates: start: 20200212
  2. KANJINTI [Suspect]
     Active Substance: TRASTUZUMAB-ANNS
     Dosage: 410 MILLIGRAM
     Route: 065

REACTIONS (1)
  - Weight decreased [Unknown]

NARRATIVE: CASE EVENT DATE: 2020
